FAERS Safety Report 6081384-8 (Version None)
Quarter: 2009Q1

REPORT INFORMATION
  Report Type: 
  Country: None (occurrence: None)
  Receive Date: 20090213
  Receipt Date: 20090128
  Transmission Date: 20090719
  Serious: Yes (Hospitalization)
  Sender: FDA-Public Use
  Company Number: 8042616

PATIENT
  Age: 50 Year
  Sex: Male

DRUGS (14)
  1. KEPPRA [Suspect]
     Indication: PARTIAL SEIZURES
     Dosage: 1000 MG 1/D PO
     Route: 048
     Dates: start: 20070501, end: 20080222
  2. NORSET [Suspect]
     Indication: DEPRESSION
     Dosage: 75 MG 1/D PO
     Route: 048
     Dates: start: 20070901, end: 20080220
  3. TRAMADOL HCL [Suspect]
     Indication: PAIN
     Dosage: PRN PO
     Route: 048
     Dates: start: 20070901, end: 20080220
  4. TRAMADOL HCL [Suspect]
     Indication: PAIN
     Dosage: 200 MG 1/D PO
     Route: 048
     Dates: start: 20070901, end: 20080220
  5. MEDROL [Suspect]
     Indication: BRAIN NEOPLASM
     Dosage: 100 MG / D PO
     Route: 048
     Dates: start: 20071109, end: 20071228
  6. MEDROL [Suspect]
     Indication: BRAIN NEOPLASM
     Dosage: 50 MG/D PO
     Route: 048
     Dates: start: 20071229, end: 20080221
  7. TEMODAL [Suspect]
     Indication: BRAIN NEOPLASM
     Dosage: 120 MG 1/D PO
     Route: 048
     Dates: start: 20071218, end: 20071222
  8. TEMODAL [Suspect]
     Indication: BRAIN NEOPLASM
     Dosage: 120 MG /D PO
     Route: 048
     Dates: start: 20080110, end: 20080220
  9. BROMAZEPAM [Suspect]
     Indication: ANXIETY
     Dosage: 0.25 CI 2/D PO
     Route: 048
     Dates: start: 20070901, end: 20080220
  10. NEXIUM [Suspect]
     Dosage: 1 DF 1/D PO
     Route: 048
     Dates: start: 20070901, end: 20080220
  11. DIARETYL [Concomitant]
  12. RHINUREFLEX [Concomitant]
  13. XX [Concomitant]
  14. XX [Concomitant]

REACTIONS (10)
  - ANXIETY [None]
  - BRAIN NEOPLASM [None]
  - CHOLESTASIS [None]
  - DEPRESSION [None]
  - DIARRHOEA [None]
  - LYMPHOPENIA [None]
  - PAIN [None]
  - RHINITIS [None]
  - STEVENS-JOHNSON SYNDROME [None]
  - THROMBOCYTOPENIA [None]
